FAERS Safety Report 13371062 (Version 2)
Quarter: 2025Q4

REPORT INFORMATION
  Report Type: Spontaneous
  Country: IR (occurrence: IR)
  Receive Date: 20170324
  Receipt Date: 20251010
  Transmission Date: 20260117
  Serious: Yes (Other)
  Sender: SANOFI AVENTIS
  Company Number: IR-SA-2017SA044301

PATIENT
  Age: 50 Year
  Sex: Male

DRUGS (9)
  1. ANTI-THYMOCYTE GLOBULIN (RABBIT) NOS [Suspect]
     Active Substance: LAPINE T-LYMPHOCYTE IMMUNE GLOBULIN
     Indication: Delayed graft function
     Dosage: UNK
     Route: 065
  2. MYCOPHENOLATE MOFETIL [Suspect]
     Active Substance: MYCOPHENOLATE MOFETIL
     Indication: Immunosuppression
     Dosage: 2 G,QD
     Route: 065
  3. MYCOPHENOLATE MOFETIL [Suspect]
     Active Substance: MYCOPHENOLATE MOFETIL
     Dosage: 1 G,QD
     Route: 065
  4. PREDNISOLONE [Suspect]
     Active Substance: PREDNISOLONE
     Indication: Immunosuppressant drug therapy
     Dosage: 20 MG,QD
     Route: 065
  5. PREDNISOLONE [Suspect]
     Active Substance: PREDNISOLONE
     Dosage: 5 MG,QD
     Route: 065
  6. PROGRAF [Suspect]
     Active Substance: TACROLIMUS
     Indication: Immunosuppressant drug therapy
     Dosage: 4 MG,QD
     Route: 065
  7. PROGRAF [Suspect]
     Active Substance: TACROLIMUS
     Dosage: 3 MG,QD
     Route: 065
  8. DILTIAZEM [Concomitant]
     Active Substance: DILTIAZEM
     Dosage: UNK
  9. VALCYTE [Concomitant]
     Active Substance: VALGANCICLOVIR HYDROCHLORIDE
     Dosage: UNK

REACTIONS (2)
  - Kaposi^s sarcoma [Recovering/Resolving]
  - Skin mass [Recovering/Resolving]
